FAERS Safety Report 16870852 (Version 2)
Quarter: 2019Q4

REPORT INFORMATION
  Report Type: Report from Study
  Country: US (occurrence: US)
  Receive Date: 20190930
  Receipt Date: 20191230
  Transmission Date: 20200122
  Serious: No
  Sender: FDA-Public Use
  Company Number: US-CLOVIS ONCOLOGY-CLO-2019-001769

PATIENT
  Age: 75 Year
  Sex: Female

DRUGS (3)
  1. RUBRACA [Suspect]
     Active Substance: RUCAPARIB CAMSYLATE
     Dosage: 600 MG, BID
     Route: 048
     Dates: start: 20190913
  2. COUMADIN [Suspect]
     Active Substance: WARFARIN SODIUM
     Indication: COAGULOPATHY
  3. RUBRACA [Suspect]
     Active Substance: RUCAPARIB CAMSYLATE
     Indication: OVARIAN CANCER
     Dosage: 600 MG, BID
     Route: 048
     Dates: start: 20190816, end: 20190927

REACTIONS (8)
  - Fatigue [Unknown]
  - Labelled drug-drug interaction medication error [Unknown]
  - International normalised ratio increased [Unknown]
  - Feeling abnormal [Unknown]
  - Drug hypersensitivity [Unknown]
  - Diarrhoea [Unknown]
  - Rash [Not Recovered/Not Resolved]
  - Asthenia [Unknown]

NARRATIVE: CASE EVENT DATE: 201908
